FAERS Safety Report 20156953 (Version 1)
Quarter: 2021Q4

REPORT INFORMATION
  Report Type: Spontaneous
  Country: FR (occurrence: FR)
  Receive Date: 20211207
  Receipt Date: 20211207
  Transmission Date: 20220303
  Serious: Yes (Death, Hospitalization)
  Sender: FDA-Public Use
  Company Number: FR-Orion Corporation ORION PHARMA-TREX2021-0114

PATIENT
  Age: 83 Year
  Sex: Male
  Weight: 97 kg

DRUGS (16)
  1. METHOTREXATE SODIUM [Suspect]
     Active Substance: METHOTREXATE SODIUM
     Indication: Chondrocalcinosis
     Dosage: 15 MG, WEEKLY
     Route: 048
     Dates: start: 20191210, end: 20211005
  2. METHOTREXATE SODIUM [Suspect]
     Active Substance: METHOTREXATE SODIUM
     Indication: Neck pain
  3. KINERET [Concomitant]
     Active Substance: ANAKINRA
     Indication: Chondrocalcinosis
     Dosage: 100 MG
     Route: 058
     Dates: start: 20180712, end: 20211005
  4. ASPIRIN [Concomitant]
     Active Substance: ASPIRIN
     Dosage: 75 MG, 1X/DAY
     Route: 065
  5. NEBIVOLOL [Concomitant]
     Active Substance: NEBIVOLOL
     Dosage: 1.5 DF, 1X/DAY
     Route: 065
  6. RAMIPRIL [Concomitant]
     Active Substance: RAMIPRIL
     Dosage: 5 MG, 1X/DAY
     Route: 065
  7. ROSUVASTATIN [Concomitant]
     Active Substance: ROSUVASTATIN
     Dosage: 2 DF, 1X/DAY
     Route: 065
  8. BUMETANIDE [Concomitant]
     Active Substance: BUMETANIDE
     Dosage: 5 MG, 1X/DAY
     Route: 065
  9. FEBUXOSTAT [Concomitant]
     Active Substance: FEBUXOSTAT
     Dosage: 80 MG, 1X/DAY
     Route: 065
  10. SITAGLIPTIN [Concomitant]
     Active Substance: SITAGLIPTIN
     Dosage: 0.5 DF, 1X/DAY
     Route: 065
  11. FUROSEMIDE [Concomitant]
     Active Substance: FUROSEMIDE
     Dosage: 40 MG, 1X/DAY
     Route: 065
  12. PANTOPRAZOLE [Concomitant]
     Active Substance: PANTOPRAZOLE
     Dosage: 40 MG, 1X/DAY
     Route: 065
  13. METFORMIN [Concomitant]
     Active Substance: METFORMIN HYDROCHLORIDE
     Dosage: UNK, 2X/DAY
     Route: 065
  14. FOLIC ACID [Concomitant]
     Active Substance: FOLIC ACID
     Dosage: 5 MG, 1X/DAY
     Route: 065
  15. ALBUTEROL [Concomitant]
     Active Substance: ALBUTEROL
     Dosage: 3X/DAY(STRENGTH: 2.5 MG/2.5 ML )
     Route: 065
  16. INSULIN LISPRO [Concomitant]
     Active Substance: INSULIN LISPRO
     Dosage: 100 IU/ML, ACCORDING TO BLOOD GLUCOSE LEVEL

REACTIONS (15)
  - Pneumonia fungal [Fatal]
  - Respiratory failure [Fatal]
  - Lymphopenia [Recovering/Resolving]
  - Oral herpes [Recovering/Resolving]
  - Inflammation [Unknown]
  - Hypercreatinaemia [Unknown]
  - Blood urea increased [Unknown]
  - Hypoxia [Unknown]
  - Tachypnoea [Unknown]
  - Hypocapnia [Unknown]
  - Hyperlactacidaemia [Unknown]
  - Condition aggravated [Unknown]
  - Dyspnoea [Unknown]
  - Decreased appetite [Unknown]
  - Off label use [Unknown]

NARRATIVE: CASE EVENT DATE: 20191210
